FAERS Safety Report 21328553 (Version 1)
Quarter: 2022Q3

REPORT INFORMATION
  Report Type: Spontaneous
  Country: IT (occurrence: IT)
  Receive Date: 20220913
  Receipt Date: 20220913
  Transmission Date: 20221026
  Serious: Yes (Hospitalization)
  Sender: FDA-Public Use
  Company Number: None

PATIENT
  Age: 39 Year
  Sex: Male

DRUGS (7)
  1. ZOLPIDEM [Suspect]
     Active Substance: ZOLPIDEM TARTRATE
     Indication: Borderline personality disorder
     Dosage: UNK (4 CPR DA 10MG)
     Route: 048
     Dates: start: 20220902
  2. RIVOTRIL [Suspect]
     Active Substance: CLONAZEPAM
     Indication: Borderline personality disorder
     Dosage: UNK (8 CPR DA 2 MG)
     Route: 048
     Dates: start: 20220902
  3. CHLORPROMAZINE [Suspect]
     Active Substance: CHLORPROMAZINE
     Indication: Borderline personality disorder
     Dosage: UNK (4 CPR DA 100MG)
     Route: 048
     Dates: start: 20220902
  4. ABILIFY [Concomitant]
     Active Substance: ARIPIPRAZOLE
     Indication: Product used for unknown indication
     Dosage: 15 MG, QD (15MG/DIE)
     Route: 048
  5. VALPROATE SODIUM [Concomitant]
     Active Substance: VALPROATE SODIUM
     Indication: Product used for unknown indication
     Dosage: 500 MG, BID (500MG/2 VOLTE AL GIORNO)
     Route: 048
  6. QUETIAPINE [Concomitant]
     Active Substance: QUETIAPINE
     Indication: Product used for unknown indication
     Dosage: 100 MG, QD (100MG/DIE)
     Route: 048
  7. METHADONE [Concomitant]
     Active Substance: METHADONE HYDROCHLORIDE
     Indication: Product used for unknown indication
     Dosage: 30 MG, QD (30MG/DIE)
     Route: 048

REACTIONS (2)
  - Wound [Recovered/Resolved]
  - Drug abuse [Unknown]

NARRATIVE: CASE EVENT DATE: 20220902
